FAERS Safety Report 16352946 (Version 7)
Quarter: 2020Q1

REPORT INFORMATION
  Report Type: Spontaneous
  Country: US (occurrence: US)
  Receive Date: 20190524
  Receipt Date: 20200306
  Transmission Date: 20200409
  Serious: Yes (Hospitalization)
  Sender: FDA-Public Use
  Company Number: US-PFIZER INC-2019218576

PATIENT
  Age: 66 Year
  Sex: Female
  Weight: 54 kg

DRUGS (4)
  1. LYRICA [Suspect]
     Active Substance: PREGABALIN
     Indication: FIBROMYALGIA
     Dosage: 75 MG, 2X/DAY
  2. LYRICA [Suspect]
     Active Substance: PREGABALIN
     Dosage: 100 MG, DAILY(TWO 50MG)
  3. LYRICA [Suspect]
     Active Substance: PREGABALIN
     Dosage: 87.5 MG, DAILY (SPLITTING THE 75 MG CAPSULE IN HALF DURING THE DAY AND THEN 50 MG CAPSULE AT NIGHT)
  4. LYRICA [Suspect]
     Active Substance: PREGABALIN
     Dosage: 50 MG, DAILY

REACTIONS (5)
  - Bone disorder [Unknown]
  - Therapeutic response unexpected [Unknown]
  - Gait disturbance [Unknown]
  - Post procedural complication [Unknown]
  - Intentional product misuse [Recovered/Resolved]
